FAERS Safety Report 13688033 (Version 1)
Quarter: 2017Q2

REPORT INFORMATION
  Report Type: Spontaneous
  Country: US (occurrence: US)
  Receive Date: 20170626
  Receipt Date: 20170626
  Transmission Date: 20170830
  Serious: No
  Sender: FDA-Public Use
  Company Number: US-ACCORD-043403

PATIENT
  Sex: Female

DRUGS (1)
  1. ACCORD^S CLONAZEPAM [Suspect]
     Active Substance: CLONAZEPAM
     Indication: ANXIETY
     Route: 048

REACTIONS (6)
  - Negative thoughts [Unknown]
  - Product quality issue [Unknown]
  - Drug ineffective [Unknown]
  - Insomnia [Unknown]
  - Quality of life decreased [Unknown]
  - Anxiety [Unknown]
